FAERS Safety Report 9220142 (Version 2)
Quarter: 2013Q2

REPORT INFORMATION
  Report Type: Spontaneous
  Country: JP (occurrence: JP)
  Receive Date: 20130409
  Receipt Date: 20130620
  Transmission Date: 20140414
  Serious: Yes (Other)
  Sender: FDA-Public Use
  Company Number: JP-PFIZER INC-2013107295

PATIENT
  Sex: Female

DRUGS (3)
  1. PREMARIN [Suspect]
     Indication: INFERTILITY
     Dosage: 0.625 MG, 1X/DAY
     Route: 048
  2. PROVERA [Suspect]
     Indication: INFERTILITY
     Dosage: 2.5 MG, 1X/DAY
     Route: 048
  3. INSULIN [Concomitant]
     Indication: DIABETES MELLITUS
     Dosage: UNK

REACTIONS (3)
  - Diabetes mellitus inadequate control [Recovered/Resolved]
  - Metrorrhagia [Recovered/Resolved]
  - Off label use [Unknown]
